FAERS Safety Report 7005598-5 (Version None)
Quarter: 2010Q3

REPORT INFORMATION
  Report Type: 
  Country: None (occurrence: None)
  Receive Date: 20100921
  Receipt Date: 20100917
  Transmission Date: 20110219
  Serious: Yes (Hospitalization, Disabling)
  Sender: FDA-Public Use
  Company Number: A0881693A

PATIENT
  Age: 81 Year
  Sex: Male

DRUGS (5)
  1. PROMACTA [Suspect]
     Indication: THROMBOCYTOPENIA
     Dosage: 50MG PER DAY
     Route: 048
  2. COLCHICINE [Concomitant]
  3. BLOOD PRESSURE MEDICATION [Concomitant]
  4. ANTIBIOTICS [Concomitant]
  5. ANTIFUNGAL TREATMENT [Concomitant]

REACTIONS (1)
  - WHITE BLOOD CELL COUNT INCREASED [None]
